FAERS Safety Report 12577806 (Version 1)
Quarter: 2016Q3

REPORT INFORMATION
  Report Type: Spontaneous
  Country: QA (occurrence: QA)
  Receive Date: 20160721
  Receipt Date: 20160721
  Transmission Date: 20161109
  Serious: Yes (Hospitalization)
  Sender: FDA-Public Use
  Company Number: QA-ASTRAZENECA-2016SE77630

PATIENT
  Age: 33 Year
  Sex: Male

DRUGS (2)
  1. ONGLYZA [Suspect]
     Active Substance: SAXAGLIPTIN HYDROCHLORIDE
     Route: 048
     Dates: start: 201402
  2. KOMBIGLYZE XR [Suspect]
     Active Substance: METFORMIN HYDROCHLORIDE\SAXAGLIPTIN HYDROCHLORIDE
     Dosage: 5 MG/1000 MG ONCE DAILY.
     Route: 048

REACTIONS (6)
  - Palpitations [Recovering/Resolving]
  - Retroperitoneal oedema [Recovering/Resolving]
  - Pancreatitis acute [Recovering/Resolving]
  - Dizziness [Recovering/Resolving]
  - Pancreatitis necrotising [Recovering/Resolving]
  - Dyspnoea [Recovering/Resolving]

NARRATIVE: CASE EVENT DATE: 201510
